FAERS Safety Report 15865576 (Version 1)
Quarter: 2019Q1

REPORT INFORMATION
  Report Type: Spontaneous
  Country: DE (occurrence: DE)
  Receive Date: 20190125
  Receipt Date: 20190125
  Transmission Date: 20190417
  Serious: Yes (Other)
  Sender: FDA-Public Use
  Company Number: DE-AUROBINDO-AUR-APL-2018-018784

PATIENT
  Sex: Male

DRUGS (12)
  1. MILNACIPRAN [Suspect]
     Active Substance: MILNACIPRAN
     Indication: OBSESSIVE-COMPULSIVE DISORDER
     Dosage: 25 MILLIGRAM, TWO TIMES A DAY
     Route: 065
     Dates: start: 20180418, end: 201806
  2. ANAFRANIL [Concomitant]
     Active Substance: CLOMIPRAMINE HYDROCHLORIDE
     Indication: PRODUCT USED FOR UNKNOWN INDICATION
     Dosage: UNK
     Route: 065
  3. MILNACIPRAN [Suspect]
     Active Substance: MILNACIPRAN
     Dosage: 150 MILLIGRAM, ONCE A DAY
     Route: 065
  4. VENLAFAXINE [Suspect]
     Active Substance: VENLAFAXINE HYDROCHLORIDE
     Indication: MAJOR DEPRESSION
     Dosage: 225 MILLIGRAM, ONCE A DAY
     Route: 048
  5. CLOMIPRAMINE [Suspect]
     Active Substance: CLOMIPRAMINE
     Indication: OBSESSIVE-COMPULSIVE DISORDER
     Dosage: 300 MILLIGRAM, ONCE A DAY, DAILY
     Route: 048
     Dates: start: 1995, end: 2015
  6. MILNACIPRAN [Suspect]
     Active Substance: MILNACIPRAN
     Dosage: 100 MILLIGRAM, ONCE A DAY
     Route: 065
     Dates: start: 201806
  7. OMEP [Concomitant]
     Active Substance: OMEPRAZOLE
     Indication: HIATUS HERNIA
     Dosage: UNK, 1 DAY
     Route: 065
  8. VENLAFAXINE [Suspect]
     Active Substance: VENLAFAXINE HYDROCHLORIDE
     Indication: OBSESSIVE-COMPULSIVE DISORDER
     Dosage: 300 MILLIGRAM, ONCE A DAY
     Route: 048
     Dates: start: 201602
  9. VENLAFAXINE [Suspect]
     Active Substance: VENLAFAXINE HYDROCHLORIDE
     Dosage: 37.5 MILLIGRAM, ONCE A DAY, 37.5MG PLUS 25 MG MILNACIPRAN
     Route: 048
  10. MILNACIPRAN [Suspect]
     Active Substance: MILNACIPRAN
     Indication: PRODUCT USED FOR UNKNOWN INDICATION
     Dosage: 25 MILLIGRAM, ONCE A DAY, 37.5MG PLUS 25 MG MILNACIPRAN
     Route: 065
  11. VENLAFAXINE [Suspect]
     Active Substance: VENLAFAXINE HYDROCHLORIDE
     Dosage: 150 MILLIGRAM, ONCE A DAY
     Route: 048
  12. VENLAFAXINE [Suspect]
     Active Substance: VENLAFAXINE HYDROCHLORIDE
     Dosage: 75 MILLIGRAM, ONCE A DAY
     Route: 048

REACTIONS (22)
  - Language disorder [Recovered/Resolved]
  - Drug effect incomplete [Not Recovered/Not Resolved]
  - Feeling hot [Not Recovered/Not Resolved]
  - Micturition frequency decreased [Recovering/Resolving]
  - Affective disorder [Recovering/Resolving]
  - Hyperhidrosis [Recovered/Resolved]
  - Pain [Unknown]
  - Influenza like illness [Recovered/Resolved]
  - Listless [Recovering/Resolving]
  - Promiscuity [Unknown]
  - Product use issue [Unknown]
  - Urinary tract disorder [Not Recovered/Not Resolved]
  - Constipation [Recovered/Resolved]
  - Off label use [Unknown]
  - Product use in unapproved indication [Unknown]
  - Aphasia [Recovered/Resolved]
  - Condition aggravated [Not Recovered/Not Resolved]
  - Libido decreased [Recovering/Resolving]
  - Sleep disorder [Recovering/Resolving]
  - Food intolerance [Unknown]
  - Disturbance in attention [Recovering/Resolving]
  - Psychotic disorder [Unknown]
